FAERS Safety Report 9695708 (Version 4)
Quarter: 2014Q4

REPORT INFORMATION
  Report Type: Spontaneous
  Country: US (occurrence: US)
  Receive Date: 20131119
  Receipt Date: 20141211
  Transmission Date: 20150529
  Serious: Yes (Other)
  Sender: FDA-Public Use
  Company Number: US-AMGEN-USASP2013081345

PATIENT
  Age: 36 Year
  Sex: Female
  Weight: 73.47 kg

DRUGS (4)
  1. ZOLOFT [Concomitant]
     Active Substance: SERTRALINE HYDROCHLORIDE
     Indication: DEPRESSION
     Dosage: 12.5 MG, QD
     Route: 048
  2. FLU [Concomitant]
     Active Substance: INFLUENZA VIRUS VACCINE
     Dosage: UNK
  3. PRENATAL VITAMINS                  /02014401/ [Concomitant]
     Active Substance: VITAMINS
     Dosage: UNK
  4. ENBREL [Suspect]
     Active Substance: ETANERCEPT
     Indication: PSORIATIC ARTHROPATHY
     Dosage: 50 MG, QWK
     Route: 058
     Dates: start: 201110, end: 20130109

REACTIONS (5)
  - Gestational diabetes [Recovered/Resolved]
  - Costochondritis [Not Recovered/Not Resolved]
  - Pain in extremity [Not Recovered/Not Resolved]
  - Induced labour [Unknown]
  - Beta haemolytic streptococcal infection [Unknown]

NARRATIVE: CASE EVENT DATE: 2013
